FAERS Safety Report 9294696 (Version 2)
Quarter: 2013Q3

REPORT INFORMATION
  Report Type: Spontaneous
  Country: JP (occurrence: JP)
  Receive Date: 20130517
  Receipt Date: 20130812
  Transmission Date: 20140515
  Serious: Yes (Hospitalization)
  Sender: FDA-Public Use
  Company Number: JP-ROCHE-1223793

PATIENT
  Age: 66 Year
  Sex: Female
  Weight: 60 kg

DRUGS (22)
  1. PEGASYS [Suspect]
     Indication: CHRONIC HEPATITIS C
     Route: 058
     Dates: start: 20121212, end: 20130213
  2. DIOVAN [Concomitant]
     Indication: HYPERTENSION
     Route: 048
     Dates: end: 20130318
  3. DIOVAN [Concomitant]
     Indication: HYPERTENSION
     Route: 048
     Dates: start: 20130409, end: 20130411
  4. DIOVAN [Concomitant]
     Indication: HYPERTENSION
     Route: 048
     Dates: start: 20130412
  5. CO-DIO [Concomitant]
     Indication: HYPERTENSION
     Route: 048
     Dates: end: 20130325
  6. ADALAT [Concomitant]
     Indication: HYPERTENSION
     Route: 048
     Dates: end: 20130409
  7. ALOSITOL [Concomitant]
     Indication: HEPATITIS C
     Route: 048
     Dates: end: 20130409
  8. URSO [Concomitant]
     Indication: HEPATITIS C
     Route: 048
     Dates: start: 20120416
  9. GLYCYRON [Concomitant]
     Indication: HEPATITIS C
     Route: 048
     Dates: start: 20120416
  10. PARIET [Concomitant]
     Indication: GASTROOESOPHAGEAL REFLUX DISEASE
     Route: 048
     Dates: start: 20130315
  11. GASMOTIN [Concomitant]
     Indication: GASTRITIS
     Route: 048
     Dates: start: 20130316
  12. MIYA BM [Concomitant]
     Indication: DIARRHOEA
     Route: 048
     Dates: start: 20130319
  13. PERSANTIN [Concomitant]
     Indication: THROMBOSIS PROPHYLAXIS
     Route: 048
     Dates: start: 20130322
  14. ZOPICLONE [Concomitant]
     Indication: INSOMNIA
     Route: 048
     Dates: start: 20130323
  15. CRESTOR [Concomitant]
     Indication: HYPERLIPIDAEMIA
     Route: 048
     Dates: start: 20130327
  16. FEBURIC [Concomitant]
     Indication: HYPERURICAEMIA
     Route: 048
     Dates: start: 20130327
  17. EDIROL [Concomitant]
     Indication: OSTEOPOROSIS
     Route: 048
     Dates: start: 20130401
  18. NIFEDIPINE CR [Concomitant]
     Indication: HYPERTENSION
     Route: 048
     Dates: start: 20130405
  19. WARFARIN [Concomitant]
     Indication: THROMBOSIS PROPHYLAXIS
     Route: 048
     Dates: start: 20130405, end: 20130411
  20. WARFARIN [Concomitant]
     Indication: THROMBOSIS PROPHYLAXIS
     Route: 048
     Dates: start: 20130412
  21. VILDAGLIPTIN [Concomitant]
     Indication: DIABETES MELLITUS
     Route: 048
     Dates: start: 20130406
  22. ASPARA K [Concomitant]
     Indication: HYPOKALAEMIA
     Route: 048
     Dates: start: 20130412

REACTIONS (2)
  - Nephrotic syndrome [Not Recovered/Not Resolved]
  - Glomerulonephritis minimal lesion [Not Recovered/Not Resolved]
